FAERS Safety Report 4351066-9 (Version None)
Quarter: 2004Q2

REPORT INFORMATION
  Report Type: 
  Country: None (occurrence: None)
  Receive Date: 20040429
  Receipt Date: 20031216
  Transmission Date: 20050107
  Serious: Yes (Hospitalization)
  Sender: FDA-Public Use
  Company Number: 2003UW16708

PATIENT
  Age: 43 Year
  Sex: Male
  Weight: 95.2554 kg

DRUGS (4)
  1. ZOMIG [Suspect]
     Dosage: 5 MG PO
     Route: 048
     Dates: start: 20020101
  2. ZONEGRAN [Suspect]
  3. TOPAMAX [Concomitant]
  4. ELAVIL [Concomitant]

REACTIONS (1)
  - LEUKOPENIA [None]
